FAERS Safety Report 4963676-6 (Version None)
Quarter: 2006Q1

REPORT INFORMATION
  Report Type: 
  Country: None (occurrence: None)
  Receive Date: 20060330
  Receipt Date: 20060320
  Transmission Date: 20060701
  Serious: Yes (Life-Threatening, Hospitalization)
  Sender: FDA-Public Use
  Company Number: 223198

PATIENT
  Age: 62 Year
  Sex: Female
  Weight: 83.5 kg

DRUGS (14)
  1. MABTHERA (RITUXIMAB) CONC FOR SOLUTION FOR INFUSION [Suspect]
     Indication: CHRONIC LYMPHOCYTIC LEUKAEMIA
     Dosage: SEE IMAGE
     Route: 042
     Dates: start: 20050707
  2. MABTHERA (RITUXIMAB) CONC FOR SOLUTION FOR INFUSION [Suspect]
     Indication: CHRONIC LYMPHOCYTIC LEUKAEMIA
     Dosage: SEE IMAGE
     Route: 042
     Dates: start: 20050804
  3. RESPRIM FORTE (SULFAMETHOXAZOLE, TRIMETHOPRIM) [Suspect]
     Indication: PNEUMOCYSTIS JIROVECI INFECTION
     Dosage: 3 TABLET, 2/WEEK, ORAL
     Route: 048
     Dates: start: 20050915
  4. CYCLOPHOSPHAMIDE [Suspect]
     Indication: CHRONIC LYMPHOCYTIC LEUKAEMIA
     Dosage: SEE IMAGE
     Route: 042
     Dates: start: 20050708, end: 20050904
  5. CYCLOPHOSPHAMIDE [Suspect]
     Indication: CHRONIC LYMPHOCYTIC LEUKAEMIA
     Dosage: SEE IMAGE
     Route: 042
     Dates: start: 20051007
  6. FLUDARABINE [Suspect]
     Indication: CHRONIC LYMPHOCYTIC LEUKAEMIA
     Dosage: SEE IMAGE
     Route: 042
     Dates: start: 20050708, end: 20050904
  7. FLUDARABINE [Suspect]
     Indication: CHRONIC LYMPHOCYTIC LEUKAEMIA
     Dosage: SEE IMAGE
     Route: 042
     Dates: start: 20051007
  8. LEVOTHYROXINE SODIUM [Concomitant]
  9. PANCRELIPASE [Concomitant]
  10. ERGOCALCIFEROL [Concomitant]
  11. ESTRADIOL [Concomitant]
  12. NYSTATIN [Concomitant]
  13. MIDAZOLAM HYDROCHLORIDE [Concomitant]
  14. LIDOCAINE [Concomitant]

REACTIONS (4)
  - AGRANULOCYTOSIS [None]
  - COLD SWEAT [None]
  - LETHARGY [None]
  - PAIN [None]
